FAERS Safety Report 8452353-5 (Version None)
Quarter: 2012Q2

REPORT INFORMATION
  Report Type: 
  Country: None (occurrence: None)
  Receive Date: 20120620
  Receipt Date: 20120409
  Transmission Date: 20120825
  Serious: No
  Sender: FDA-Public Use
  Company Number: US-VERTEX PHARMACEUTICALS INC.-AE-2012-005015

PATIENT
  Sex: Female
  Weight: 160.72 kg

DRUGS (3)
  1. PEGASYS [Concomitant]
     Indication: HEPATITIS C
     Route: 058
     Dates: start: 20120406
  2. RIBAVIRIN [Concomitant]
     Indication: HEPATITIS C
     Route: 048
     Dates: start: 20120406
  3. INCIVEK [Suspect]
     Indication: HEPATITIS C
     Route: 048
     Dates: start: 20120406

REACTIONS (4)
  - TONGUE DISCOLOURATION [None]
  - DIARRHOEA [None]
  - INCORRECT DRUG ADMINISTRATION DURATION [None]
  - HAEMORRHOIDS [None]
